FAERS Safety Report 15842836 (Version 1)
Quarter: 2018Q4

REPORT INFORMATION
  Report Type: Spontaneous
  Country: US (occurrence: US)
  Receive Date: 20181226
  Receipt Date: 20181226
  Transmission Date: 20190205
  Serious: No
  Sender: FDA-Public Use
  Company Number: None

PATIENT
  Age: 80 Year
  Sex: Female
  Weight: 102.97 kg

DRUGS (2)
  1. ACTEMRA [Suspect]
     Active Substance: TOCILIZUMAB
     Indication: RHEUMATOID ARTHRITIS
     Dosage: INJECT 162MG SUBCUTANEOUSLY EVERY WEEK AS DIRECTED
     Route: 058
     Dates: start: 201804
  2. ACTEMRA [Suspect]
     Active Substance: TOCILIZUMAB
     Indication: RHEUMATOID FACTOR POSITIVE
     Dosage: INJECT 162MG SUBCUTANEOUSLY EVERY WEEK AS DIRECTED
     Route: 058
     Dates: start: 201804

REACTIONS (1)
  - Urinary tract infection [None]
